FAERS Safety Report 8803541 (Version 3)
Quarter: 2012Q4

REPORT INFORMATION
  Report Type: 
  Country: US (occurrence: US)
  Receive Date: 20120924
  Receipt Date: 20121026
  Transmission Date: 20130627
  Serious: Yes (Hospitalization, Other)
  Sender: FDA-Public Use
  Company Number: US-ACTELION-A-US2012-71495

PATIENT
  Age: 54 Year
  Sex: Male

DRUGS (1)
  1. TRACLEER [Suspect]
     Indication: PULMONARY ARTERIAL HYPERTENSION
     Dosage: UNK
     Route: 048

REACTIONS (9)
  - Cardiac operation [Unknown]
  - Sepsis [Unknown]
  - Aortic injury [Unknown]
  - Transient ischaemic attack [Unknown]
  - Blood pressure increased [Unknown]
  - Heart rate increased [Unknown]
  - Dyspnoea [Unknown]
  - Dizziness [Unknown]
  - Chest pain [Unknown]
